FAERS Safety Report 23963444 (Version 1)
Quarter: 2024Q2

REPORT INFORMATION
  Report Type: Spontaneous
  Country: CN (occurrence: CN)
  Receive Date: 20240611
  Receipt Date: 20240611
  Transmission Date: 20240715
  Serious: Yes (Hospitalization)
  Sender: FDA-Public Use
  Company Number: CN-Merck Healthcare KGaA-2024029927

PATIENT
  Age: 70 Year
  Sex: Male
  Weight: 90 kg

DRUGS (6)
  1. ERBITUX [Suspect]
     Active Substance: CETUXIMAB
     Indication: Rectal cancer metastatic
     Dosage: 900 MG, UNK
     Route: 041
     Dates: start: 20240205
  2. ERBITUX [Suspect]
     Active Substance: CETUXIMAB
     Dosage: 900 MG, UNK
     Route: 041
     Dates: start: 20240427, end: 20240427
  3. CAPECITABINE [Suspect]
     Active Substance: CAPECITABINE
     Indication: Rectal cancer metastatic
     Dosage: 1.5 G, UNK
     Route: 048
     Dates: start: 20240205
  4. CAPECITABINE [Suspect]
     Active Substance: CAPECITABINE
     Dosage: 1.5 G, UNK
     Route: 048
     Dates: start: 20240426, end: 20240510
  5. FLUOROURACIL [Concomitant]
     Active Substance: FLUOROURACIL
     Indication: Rectal cancer metastatic
     Dosage: UNK
  6. OXALIPLATIN [Concomitant]
     Active Substance: OXALIPLATIN
     Indication: Rectal cancer metastatic
     Dosage: UNK

REACTIONS (1)
  - Palmar-plantar erythrodysaesthesia syndrome [Recovering/Resolving]

NARRATIVE: CASE EVENT DATE: 20240519
